FAERS Safety Report 7920793-6 (Version None)
Quarter: 2011Q4

REPORT INFORMATION
  Report Type: 
  Country: None (occurrence: None)
  Receive Date: 20111117
  Receipt Date: 20111104
  Transmission Date: 20120403
  Serious: Yes (Hospitalization, Other)
  Sender: FDA-Public Use
  Company Number: US-ELI_LILLY_AND_COMPANY-US201010002009

PATIENT
  Sex: Female

DRUGS (4)
  1. FORTEO [Suspect]
     Dosage: 20 UG, QD
  2. COUMADIN [Concomitant]
  3. FORTEO [Suspect]
     Dosage: 20 UG, QD
  4. FORTEO [Suspect]
     Indication: OSTEOPOROSIS
     Dosage: 20 UG, DAILY (1/D)
     Dates: start: 20091001, end: 20101005

REACTIONS (15)
  - EATING DISORDER [None]
  - ASTHENIA [None]
  - RETCHING [None]
  - QUALITY OF LIFE DECREASED [None]
  - INJECTION SITE PAIN [None]
  - PNEUMONIA [None]
  - MUSCLE SPASMS [None]
  - URINARY TRACT INFECTION [None]
  - DRUG PRESCRIBING ERROR [None]
  - THORACIC CAVITY DRAINAGE [None]
  - NAUSEA [None]
  - DRUG DOSE OMISSION [None]
  - PAIN [None]
  - WEIGHT DECREASED [None]
  - ABDOMINAL DISCOMFORT [None]
